FAERS Safety Report 7851994-3 (Version None)
Quarter: 2011Q4

REPORT INFORMATION
  Report Type: 
  Country: None (occurrence: None)
  Receive Date: 20111026
  Receipt Date: 20111014
  Transmission Date: 20120403
  Serious: Yes (Death, Other)
  Sender: FDA-Public Use
  Company Number: FI-JNJFOC-20111010523

PATIENT
  Sex: Male

DRUGS (3)
  1. TRAMADOL HYDROCHLORIDE [Suspect]
     Indication: PAIN
     Dosage: MAX.350 MG
     Route: 065
  2. PREGABALIN [Suspect]
     Indication: PAIN
     Route: 065
     Dates: start: 20060101
  3. ZOPICLONE [Suspect]
     Indication: INSOMNIA
     Dosage: 0.5 TO 1 PER NIGHT
     Route: 065

REACTIONS (3)
  - ACCIDENTAL DEATH [None]
  - ANALGESIC DRUG LEVEL ABOVE THERAPEUTIC [None]
  - DRUG LEVEL ABOVE THERAPEUTIC [None]
